FAERS Safety Report 11662570 (Version 1)
Quarter: 2015Q4

REPORT INFORMATION
  Report Type: Spontaneous
  Country: US (occurrence: US)
  Receive Date: 20151027
  Receipt Date: 20151027
  Transmission Date: 20160304
  Serious: No
  Sender: FDA-Public Use
  Company Number: US-MEDA-2014040012

PATIENT
  Age: 83 Year
  Sex: Female
  Weight: 53 kg

DRUGS (3)
  1. LEVOXYL [Concomitant]
     Active Substance: LEVOTHYROXINE SODIUM
     Indication: THYROID DISORDER
     Dosage: 88 MCG
     Route: 048
  2. ASTEPRO [Suspect]
     Active Substance: AZELASTINE HYDROCHLORIDE
     Indication: SINUS CONGESTION
     Dates: start: 2014, end: 201403
  3. AMLODIPINE [Concomitant]
     Active Substance: AMLODIPINE BESYLATE
     Indication: HYPERTENSION
     Dosage: ONE HALF OF PILL
     Route: 048

REACTIONS (5)
  - Nasal mucosal disorder [Recovering/Resolving]
  - Nasal dryness [Recovering/Resolving]
  - Nasal discomfort [Recovering/Resolving]
  - Epistaxis [Recovering/Resolving]
  - Drug ineffective [Not Recovered/Not Resolved]

NARRATIVE: CASE EVENT DATE: 2014
